FAERS Safety Report 23615008 (Version 1)
Quarter: 2024Q1

REPORT INFORMATION
  Report Type: Spontaneous
  Country: US (occurrence: US)
  Receive Date: 20240311
  Receipt Date: 20240311
  Transmission Date: 20240409
  Serious: Yes (Other)
  Sender: FDA-Public Use
  Company Number: US-JNJFOC-20240300380

PATIENT
  Sex: Male

DRUGS (2)
  1. XARELTO [Suspect]
     Active Substance: RIVAROXABAN
     Indication: Deep vein thrombosis
     Route: 048
  2. XARELTO [Suspect]
     Active Substance: RIVAROXABAN
     Indication: Pulmonary embolism

REACTIONS (7)
  - Arteriosclerosis coronary artery [Unknown]
  - Antiphospholipid syndrome [Unknown]
  - Visual impairment [Unknown]
  - Balance disorder [Unknown]
  - Immune system disorder [Unknown]
  - Brain natriuretic peptide decreased [Unknown]
  - Obesity [Unknown]
